FAERS Safety Report 6687653-2 (Version None)
Quarter: 2010Q2

REPORT INFORMATION
  Report Type: 
  Country: None (occurrence: None)
  Receive Date: 20100415
  Receipt Date: 20100401
  Transmission Date: 20101027
  Serious: Yes (Other)
  Sender: FDA-Public Use
  Company Number: 009884

PATIENT
  Sex: Female
  Weight: 69.9 kg

DRUGS (11)
  1. CERTOLIZUMAB PEGOL (CPD870) [Suspect]
     Indication: RHEUMATOID ARTHRITIS
     Dosage: SUBCUTANEOUS
     Route: 058
  2. LANTAREL [Concomitant]
  3. FOLSAN [Concomitant]
  4. PREDNISOLONE [Concomitant]
  5. IBUPROFEN [Concomitant]
  6. DOXAZOSIN [Concomitant]
  7. ALENDRONATE SODIUM [Concomitant]
  8. OMEPRAZOLE [Concomitant]
  9. CALCILAC [Concomitant]
  10. AMLODIPINE W/VALSARTAN [Concomitant]
  11. TAVOE [Concomitant]

REACTIONS (3)
  - BLOOD PRESSURE DECREASED [None]
  - BRONCHITIS [None]
  - SYNCOPE [None]
